FAERS Safety Report 12534826 (Version 1)
Quarter: 2016Q3

REPORT INFORMATION
  Report Type: Report from Study
  Country: US (occurrence: US)
  Receive Date: 20160707
  Receipt Date: 20160707
  Transmission Date: 20161109
  Serious: No
  Sender: FDA-Public Use
  Company Number: US-AMGEN-USASL2016086669

PATIENT
  Age: 50 Year
  Sex: Female

DRUGS (1)
  1. ENBREL [Suspect]
     Active Substance: ETANERCEPT
     Indication: RHEUMATOID ARTHRITIS
     Dosage: 50 MG, QWK
     Route: 065
     Dates: start: 20160606

REACTIONS (8)
  - Sinusitis [Unknown]
  - Epistaxis [Unknown]
  - Pain in extremity [Unknown]
  - Acne [Not Recovered/Not Resolved]
  - Wound haemorrhage [Unknown]
  - Impaired healing [Unknown]
  - Erythema [Unknown]
  - Laceration [Not Recovered/Not Resolved]

NARRATIVE: CASE EVENT DATE: 2016
